FAERS Safety Report 25671671 (Version 1)
Quarter: 2025Q3

REPORT INFORMATION
  Report Type: Spontaneous
  Country: US (occurrence: US)
  Receive Date: 20250812
  Receipt Date: 20250812
  Transmission Date: 20251021
  Serious: Yes (Other)
  Sender: BRISTOL-MYERS SQUIBB COMPANY
  Company Number: US-BRISTOL-MYERS SQUIBB COMPANY-2025-111765

PATIENT
  Age: 71 Year
  Sex: Male

DRUGS (1)
  1. LENALIDOMIDE [Suspect]
     Active Substance: LENALIDOMIDE
     Indication: Plasma cell myeloma
     Dosage: 2 CAPSULES(10MG TOTAL) BY MOUTH IN THE MORNING FOR 21 DAYS THEN STOP 7 DAYS.
     Route: 048

REACTIONS (2)
  - Renal disorder [Unknown]
  - Drug ineffective [Unknown]
